FAERS Safety Report 5961673-5 (Version None)
Quarter: 2008Q4

REPORT INFORMATION
  Report Type: 
  Country: None (occurrence: None)
  Receive Date: 20081121
  Receipt Date: 20081113
  Transmission Date: 20090506
  Serious: Yes (Other)
  Sender: FDA-Public Use
  Company Number: AU-JNJFOC-20081006035

PATIENT
  Age: 53 Year
  Sex: Female
  Weight: 73 kg

DRUGS (18)
  1. REMICADE [Suspect]
     Indication: PSORIATIC ARTHROPATHY
     Dosage: 1 INFUSION ONLY
     Route: 042
  2. ETANERCEPT [Concomitant]
     Indication: DRUG USE FOR UNKNOWN INDICATION
  3. METHOTREXATE [Concomitant]
     Route: 058
  4. FOLIC ACID [Concomitant]
  5. SULFASALAZINE EN [Concomitant]
     Route: 048
  6. NAPROXEN [Concomitant]
     Route: 048
  7. PANTOPRAZOLE SODIUM [Concomitant]
     Route: 048
  8. MICARDIS [Concomitant]
     Route: 048
  9. ATORVASTATIN CALCIUM [Concomitant]
     Route: 048
  10. FISH OIL [Concomitant]
  11. LEVOTHYROXINE SODIUM [Concomitant]
     Route: 048
  12. COLCHICINE [Concomitant]
     Indication: PERICARDITIS
  13. REMIFEMIN [Concomitant]
  14. ZINC [Concomitant]
  15. L-LYSINE [Concomitant]
  16. MAGNESIUM SULFATE [Concomitant]
  17. ASCORBIC ACID [Concomitant]
  18. EVENING PRIMROSE OIL [Concomitant]

REACTIONS (2)
  - METASTASES TO LYMPH NODES [None]
  - TONGUE NEOPLASM MALIGNANT STAGE UNSPECIFIED [None]
